FAERS Safety Report 9063737 (Version 3)
Quarter: 2020Q4

REPORT INFORMATION
  Report Type: Spontaneous
  Country: US (occurrence: US)
  Receive Date: 20130115
  Receipt Date: 20201214
  Transmission Date: 20210114
  Serious: Yes (Hospitalization, Other)
  Sender: FDA-Public Use
  Company Number: US-RB-046094-12

PATIENT

DRUGS (14)
  1. ACETAMINOPHEN. [Suspect]
     Active Substance: ACETAMINOPHEN
     Indication: PRODUCT USED FOR UNKNOWN INDICATION
     Dosage: UNK
  2. RANITIDINE [RANITIDINE HYDROCHLORIDE] [Suspect]
     Active Substance: RANITIDINE
     Dosage: DOSING DETAILS UNKNOWN
     Route: 065
     Dates: start: 20081230, end: 20090115
  3. CEPHAZOLIN [CEFAZOLIN SODIUM] [Suspect]
     Active Substance: CEFAZOLIN SODIUM
     Indication: PARONYCHIA
     Dosage: DOSING DETAILS UNKNOWN
     Route: 065
     Dates: start: 20081211, end: 20081221
  4. BUPRENEX [Suspect]
     Active Substance: BUPRENORPHINE HYDROCHLORIDE
     Indication: DRUG WITHDRAWAL SYNDROME NEONATAL
     Dosage: UP TO 60 MCG/KG/DAY (20 MCG EVERY 8H)
     Route: 040
     Dates: start: 20081202, end: 20090115
  5. METFORMIN [METFORMIN HYDROCHLORIDE] [Suspect]
     Active Substance: METFORMIN HYDROCHLORIDE
     Indication: TYPE 2 DIABETES MELLITUS
     Dosage: UNK
     Route: 064
  6. GLIPIZIDE. [Suspect]
     Active Substance: GLIPIZIDE
     Indication: TYPE 2 DIABETES MELLITUS
     Dosage: UNK
     Route: 064
  7. RANITIDINE [RANITIDINE HYDROCHLORIDE] [Suspect]
     Active Substance: RANITIDINE
     Indication: GASTROOESOPHAGEAL REFLUX DISEASE
     Dosage: DOSING DETAILS UNKNOWN
     Route: 065
     Dates: start: 20121206, end: 20121221
  8. PHENOBARBITAL [PHENOBARBITAL SODIUM] [Suspect]
     Active Substance: PHENOBARBITAL SODIUM
     Indication: DRUG WITHDRAWAL SYNDROME
     Dosage: 5 MG/KG EVERY 12 HOURS
     Route: 065
     Dates: start: 20081210, end: 20081229
  9. OMEPRAZOLE. [Suspect]
     Active Substance: OMEPRAZOLE
     Dosage: DOSING DETAILS UNKNOWN
     Route: 065
     Dates: start: 20090115, end: 20090212
  10. METOCLOPRAMIDE [METOCLOPRAMIDE HYDROCHLORIDE] [Suspect]
     Active Substance: METOCLOPRAMIDE HYDROCHLORIDE
     Indication: GASTROOESOPHAGEAL REFLUX DISEASE
     Dosage: DOSING DETAILS UNKNOWN
     Route: 065
     Dates: start: 20081215, end: 20081221
  11. METOCLOPRAMIDE [METOCLOPRAMIDE HYDROCHLORIDE] [Suspect]
     Active Substance: METOCLOPRAMIDE HYDROCHLORIDE
     Dosage: DOSING DETAILS UNKNOWN
     Route: 065
     Dates: start: 20090109, end: 20090115
  12. OMEPRAZOLE. [Suspect]
     Active Substance: OMEPRAZOLE
     Indication: GASTROOESOPHAGEAL REFLUX DISEASE
     Dosage: UNK
     Route: 065
     Dates: start: 20081211, end: 20081221
  13. METHADONE [METHADONE HYDROCHLORIDE] [Suspect]
     Active Substance: METHADONE HYDROCHLORIDE
     Indication: PRODUCT USED FOR UNKNOWN INDICATION
     Dosage: UNK
     Route: 064
  14. CEPHAZOLIN [CEFAZOLIN SODIUM] [Suspect]
     Active Substance: CEFAZOLIN SODIUM
     Dosage: DOSING DETAILS UNKNOWN
     Route: 065
     Dates: start: 20120214, end: 20120215

REACTIONS (11)
  - Gastrooesophageal reflux disease [Unknown]
  - Pyloric stenosis [Unknown]
  - Aminoaciduria [Unknown]
  - Infantile vomiting [Unknown]
  - Cytomegalovirus infection [Unknown]
  - Hypotonia neonatal [Unknown]
  - Paronychia [Unknown]
  - Hypozincaemia [Unknown]
  - Hepatitis acute [Unknown]
  - Developmental delay [Unknown]
  - Off label use [Recovered/Resolved]

NARRATIVE: CASE EVENT DATE: 200812
